FAERS Safety Report 5693299-5 (Version None)
Quarter: 2008Q2

REPORT INFORMATION
  Report Type: 
  Country: None (occurrence: None)
  Receive Date: 20080403
  Receipt Date: 20080327
  Transmission Date: 20081010
  Serious: Yes (Hospitalization)
  Sender: FDA-Public Use
  Company Number: DK-ASTRAZENECA-2008SE01628

PATIENT
  Age: 3063 Day
  Sex: Male
  Weight: 27 kg

DRUGS (4)
  1. SPIROCORT SPRAY [Suspect]
     Indication: ASTHMA
     Route: 055
     Dates: start: 20010101
  2. SPIROCORT SPRAY [Suspect]
     Route: 055
     Dates: start: 20080317, end: 20080320
  3. SPIROCORT SPRAY [Suspect]
     Route: 055
     Dates: start: 20080327
  4. SEREVENT [Concomitant]

REACTIONS (3)
  - CONVULSION [None]
  - CYANOSIS [None]
  - TREMOR [None]
